FAERS Safety Report 9200135 (Version 5)
Quarter: 2013Q4

REPORT INFORMATION
  Report Type: Report from Study
  Country: JP (occurrence: JP)
  Receive Date: 20130329
  Receipt Date: 20131226
  Transmission Date: 20140711
  Serious: Yes (Death, Other)
  Sender: FDA-Public Use
  Company Number: JP-AMGEN-JPNCT2013022039

PATIENT
  Age: 82 Year
  Sex: Male
  Weight: 70 kg

DRUGS (16)
  1. ROMIPLATE [Suspect]
     Indication: IMMUNE THROMBOCYTOPENIC PURPURA
     Dosage: 4.29 MUG/KG, QWK
     Route: 058
     Dates: start: 20130110, end: 20130311
  2. PLATELETS, CONCENTRATED [Concomitant]
     Dosage: 10 UNIT, UNK
     Dates: start: 20121225, end: 20130410
  3. BAKTAR [Concomitant]
     Indication: PROPHYLAXIS
     Dosage: UNK
     Route: 048
  4. TAKEPRON [Concomitant]
     Indication: GASTRIC ULCER
     Dosage: UNK
     Route: 065
  5. MYSLEE [Concomitant]
     Indication: INSOMNIA
     Dosage: UNK
     Route: 048
  6. MAGLAX [Concomitant]
     Indication: CONSTIPATION
     Dosage: UNK
     Route: 048
  7. WARFARIN [Concomitant]
     Indication: ATRIAL FIBRILLATION
     Dosage: UNK
     Route: 048
  8. MUCOSTA [Concomitant]
     Indication: GASTRIC ULCER
     Dosage: UNK
     Route: 048
  9. ARTIST [Concomitant]
     Indication: HYPERTENSION
     Dosage: UNK
     Route: 048
  10. EXJADE [Concomitant]
     Indication: MYELODYSPLASTIC SYNDROME
     Dosage: UNK
     Route: 048
  11. LYRICA [Concomitant]
     Indication: HERPES ZOSTER
     Dosage: UNK
     Route: 048
  12. KALIMATE [Concomitant]
     Indication: HYPERKALAEMIA
     Dosage: UNK
     Route: 048
  13. URINORM [Concomitant]
     Indication: HYPERURICAEMIA
     Dosage: UNK
     Route: 048
  14. LIVALO [Concomitant]
     Indication: HYPERLIPIDAEMIA
     Dosage: UNK
     Route: 048
  15. LEUPLIN [Concomitant]
     Indication: PROSTATE CANCER
     Dosage: UNK
     Route: 065
  16. PURSENNIDE                         /00571901/ [Concomitant]
     Indication: CONSTIPATION
     Dosage: UNK
     Route: 048

REACTIONS (4)
  - Myelofibrosis [Not Recovered/Not Resolved]
  - Cardiac failure [Fatal]
  - Haemorrhage subcutaneous [Not Recovered/Not Resolved]
  - Pleural effusion [Not Recovered/Not Resolved]
